FAERS Safety Report 11352757 (Version 1)
Quarter: 2015Q3

REPORT INFORMATION
  Report Type: Spontaneous
  Country: US (occurrence: US)
  Receive Date: 20150807
  Receipt Date: 20150807
  Transmission Date: 20151125
  Serious: No
  Sender: FDA-Public Use
  Company Number: US-JNJFOC-20150306208

PATIENT
  Age: 67 Year
  Sex: Female
  Weight: 58.97 kg

DRUGS (3)
  1. MULTIVITAMINS [Concomitant]
     Active Substance: VITAMINS
     Indication: ROUTINE HEALTH MAINTENANCE
     Dosage: 1X DAILY
     Route: 065
  2. WOMENS ROGAINE UNSCENTED [Suspect]
     Active Substance: MINOXIDIL
     Route: 061
  3. WOMENS ROGAINE UNSCENTED [Suspect]
     Active Substance: MINOXIDIL
     Indication: ALOPECIA
     Dosage: HALF A CUPFUL ONCE A DAY
     Route: 061
     Dates: start: 20150302, end: 20150304

REACTIONS (7)
  - Rash [Unknown]
  - Swelling face [Unknown]
  - Pruritus [Unknown]
  - Laceration [Not Recovered/Not Resolved]
  - Nodule [Not Recovered/Not Resolved]
  - Underdose [Unknown]
  - Erythema [Unknown]

NARRATIVE: CASE EVENT DATE: 20150304
